FAERS Safety Report 6554106-1 (Version None)
Quarter: 2010Q1

REPORT INFORMATION
  Report Type: 
  Country: None (occurrence: None)
  Receive Date: 20100125
  Receipt Date: 20100125
  Transmission Date: 20100710
  Serious: Yes (Life-Threatening, Hospitalization)
  Sender: FDA-Public Use
  Company Number: None

PATIENT
  Age: 60 Year
  Sex: Female
  Weight: 123 kg

DRUGS (8)
  1. ISOVUE-200 [Suspect]
     Indication: STEROID THERAPY
     Dosage: UNKNOWN
     Dates: start: 20091207, end: 20091207
  2. DEXAMETHASONE EPIDURAL INJECTION [Concomitant]
  3. OXYCODONE HCL AND ACETAMINOPHEN [Concomitant]
  4. GABAPENTIN [Concomitant]
  5. ENTOCORT EC [Concomitant]
  6. TIOTROPIUM INHALER [Concomitant]
  7. ALBUTEROL SULATE [Concomitant]
  8. MULTI-VITAMIN [Concomitant]

REACTIONS (4)
  - ACUTE MYOCARDIAL INFARCTION [None]
  - BRONCHOSPASM [None]
  - PULMONARY OEDEMA [None]
  - RESPIRATORY ARREST [None]
